FAERS Safety Report 4558305-X (Version None)
Quarter: 2005Q1

REPORT INFORMATION
  Report Type: 
  Country: None (occurrence: None)
  Receive Date: 20050103
  Receipt Date: 20040929
  Transmission Date: 20050727
  Serious: Yes (Other)
  Sender: FDA-Public Use
  Company Number: 2004UW20528

PATIENT
  Age: 64 Year
  Sex: Female
  Weight: 90.7194 kg

DRUGS (6)
  1. CRESTOR [Suspect]
     Indication: VASCULITIS
     Dosage: 10 MG DAILY PO
     Route: 048
  2. SYNTHROID [Concomitant]
  3. ESTRACE [Concomitant]
  4. FLONASE [Concomitant]
  5. SUDAFED 12 HOUR [Concomitant]
  6. ALLERGY SHOTS [Concomitant]

REACTIONS (4)
  - EYE DISORDER [None]
  - EYE PRURITUS [None]
  - FEELING ABNORMAL [None]
  - PALPITATIONS [None]
